FAERS Safety Report 12239060 (Version 1)
Quarter: 2016Q2

REPORT INFORMATION
  Report Type: Spontaneous
  Country: US (occurrence: US)
  Receive Date: 20160405
  Receipt Date: 20160405
  Transmission Date: 20160815
  Serious: Yes (Other)
  Sender: FDA-Public Use
  Company Number: US-MDT-ADR-2016-00629

PATIENT
  Sex: Female
  Weight: 57 kg

DRUGS (3)
  1. BUPIVACAINE. [Suspect]
     Active Substance: BUPIVACAINE
     Dosage: 7.195 MG/DAY
     Route: 037
  2. BACLOFEN. [Suspect]
     Active Substance: BACLOFEN
     Dosage: 2.398 MCG/DAY
     Route: 037
  3. DILAUDID [Suspect]
     Active Substance: HYDROMORPHONE HYDROCHLORIDE
     Dosage: 0.17195 MG/DAY
     Route: 037

REACTIONS (4)
  - Accident [Unknown]
  - Back pain [Unknown]
  - Spinal cord compression [Unknown]
  - Unevaluable event [Unknown]
